FAERS Safety Report 9696102 (Version 3)
Quarter: 2014Q1

REPORT INFORMATION
  Report Type: Spontaneous
  Country: JP (occurrence: JP)
  Receive Date: 20131119
  Receipt Date: 20140211
  Transmission Date: 20141002
  Serious: Yes (Other)
  Sender: FDA-Public Use
  Company Number: JP-GLAXOSMITHKLINE-B0945908A

PATIENT
  Age: 68 Year
  Sex: Female

DRUGS (8)
  1. REVOLADE [Suspect]
     Indication: IMMUNE THROMBOCYTOPENIC PURPURA
     Dosage: 12.5MG PER DAY
     Route: 048
     Dates: start: 20120829, end: 20120924
  2. REVOLADE [Suspect]
     Indication: IMMUNE THROMBOCYTOPENIC PURPURA
     Dosage: 25MG PER DAY
     Route: 048
     Dates: start: 20120925
  3. PREDONINE [Concomitant]
     Indication: IMMUNE THROMBOCYTOPENIC PURPURA
     Dosage: 5MG PER DAY
     Route: 048
     Dates: start: 199604
  4. PREDONINE [Concomitant]
     Indication: IMMUNE THROMBOCYTOPENIC PURPURA
     Dosage: 4MG PER DAY
     Route: 048
  5. METHYCOBAL [Concomitant]
     Dosage: 500MCG THREE TIMES PER DAY
     Route: 048
     Dates: start: 19981026
  6. FOSAMAC [Concomitant]
     Route: 048
     Dates: start: 20051026
  7. ANPLAG [Concomitant]
     Dosage: 100MG PER DAY
     Route: 048
     Dates: start: 20060905
  8. GASTER D [Concomitant]
     Dosage: 20MG PER DAY
     Route: 048
     Dates: start: 199604

REACTIONS (7)
  - Cardiac failure [Recovering/Resolving]
  - Platelet count decreased [Unknown]
  - Malaise [Recovered/Resolved]
  - Cardiomegaly [Unknown]
  - Brain natriuretic peptide increased [Unknown]
  - Cardiac failure congestive [Unknown]
  - Cardiac failure [Unknown]
